FAERS Safety Report 9618146 (Version 3)
Quarter: 2014Q1

REPORT INFORMATION
  Report Type: Spontaneous
  Country: US (occurrence: US)
  Receive Date: 20131014
  Receipt Date: 20140117
  Transmission Date: 20141002
  Serious: Yes (Other)
  Sender: FDA-Public Use
  Company Number: US-AMGEN-USASP2013071216

PATIENT
  Age: 26 Year
  Sex: Male

DRUGS (2)
  1. ENBREL [Suspect]
     Indication: PSORIASIS
     Dosage: 50 MG, QWK
     Route: 065
     Dates: start: 20120701
  2. METHOTREXATE [Concomitant]
     Dosage: 5 PILLS, QWK

REACTIONS (1)
  - Hodgkin^s disease [Recovered/Resolved]
